FAERS Safety Report 8945692 (Version 2)
Quarter: 2012Q4

REPORT INFORMATION
  Report Type: 
  Country: US (occurrence: US)
  Receive Date: 20121205
  Receipt Date: 20121231
  Transmission Date: 20130627
  Serious: Yes (Hospitalization)
  Sender: FDA-Public Use
  Company Number: US-ASTELLAS-2012US011626

PATIENT
  Sex: Female
  Weight: 88 kg

DRUGS (17)
  1. VALIUM                             /00017001/ [Concomitant]
     Indication: BACK PAIN
     Dosage: 5 mg, UID/QD
     Route: 048
     Dates: start: 19920101
  2. DESYREL [Concomitant]
     Indication: PAIN
     Dosage: 150 mg, UID/QD
     Route: 048
     Dates: start: 19920101
  3. ENALAPRIL [Concomitant]
     Indication: BLOOD PRESSURE
     Dosage: 10 mg, UID/QD
     Route: 048
     Dates: start: 20060101
  4. LASIX                              /00032601/ [Concomitant]
     Indication: OEDEMA PERIPHERAL
     Dosage: 80 mg, bid
     Route: 048
     Dates: start: 20100101
  5. ALDACTONE                          /00006201/ [Concomitant]
     Indication: OEDEMA PERIPHERAL
     Dosage: 25 mg, bid
     Route: 048
     Dates: start: 20100101
  6. CELEXA                             /00582602/ [Concomitant]
     Indication: DEPRESSION
     Dosage: 20 mg, bid
     Route: 048
  7. TEGRETOL [Concomitant]
     Indication: MUSCLE SPASMS
     Dosage: 200 mg, UID/QD
     Route: 048
     Dates: start: 19920101
  8. MOBIC [Concomitant]
     Indication: BACK PAIN
     Dosage: 7.5 mg, UID/QD
     Dates: start: 20100101
  9. DEMEROL [Concomitant]
     Indication: PAIN
     Dosage: 50 mg, 1 to 3 times daily
     Route: 048
     Dates: start: 19920101
  10. FLEXERIL                           /00428402/ [Concomitant]
     Indication: BACK PAIN
     Dosage: 10 mg, tid
     Route: 048
     Dates: start: 20100101
  11. DILAUDID [Concomitant]
     Indication: PAIN
     Dosage: 19.477 mg, tid
     Route: 065
     Dates: start: 20060101
  12. NITROFURANTOIN [Concomitant]
     Indication: PROPHYLAXIS
     Dosage: 100 mg, UID/QD
     Route: 048
     Dates: start: 20110101
  13. POTASSIUM CHLORIDE [Concomitant]
     Indication: INFECTION
     Dosage: 20 mEq, qid
     Route: 065
  14. MIRALAX                            /00754501/ [Concomitant]
     Indication: CONSTIPATION
     Dosage: UNK
     Route: 065
     Dates: start: 20100101
  15. VESICARE [Suspect]
     Indication: HYPERTONIC BLADDER
     Dosage: 10 mg, UID/QD
     Route: 048
  16. BACLOFEN [Concomitant]
     Indication: MUSCLE RELAXANT THERAPY
     Dosage: 10 mg, qid
     Route: 048
     Dates: start: 19920101
  17. NEURONTIN [Concomitant]
     Indication: MUSCLE SPASMS
     Dosage: 300 mg, qid
     Route: 048
     Dates: start: 19920101

REACTIONS (1)
  - Cellulitis [Recovered/Resolved]
